FAERS Safety Report 8531820-X (Version None)
Quarter: 2012Q3

REPORT INFORMATION
  Report Type: 
  Country: None (occurrence: None)
  Receive Date: 20120716
  Receipt Date: 20120716
  Transmission Date: 20120928
  Serious: Yes (Hospitalization)
  Sender: FDA-Public Use
  Company Number: None

PATIENT
  Age: 51 Year
  Sex: Male
  Weight: 63.5036 kg

DRUGS (7)
  1. DIVALPROEX SODIUM [Suspect]
     Indication: EPILEPSY
     Dosage: DVPX  2G  LONG TERM
  2. RISPERIDONE [Concomitant]
  3. LEVOTHYROXINE SODIUM [Concomitant]
  4. ZONISAMIDE [Concomitant]
  5. FENOFIBRATE [Suspect]
     Indication: HYPERTRIGLYCERIDAEMIA
     Dosage: FENOFIBRATE 200MG ; FENOFIBRATE 54MG; FENOFIBRATE 160MG
     Dates: start: 20111227, end: 20120420
  6. FENOFIBRATE [Suspect]
     Indication: HYPERTRIGLYCERIDAEMIA
     Dosage: FENOFIBRATE 200MG ; FENOFIBRATE 54MG; FENOFIBRATE 160MG
     Dates: start: 20110316, end: 20111226
  7. FENOFIBRATE [Suspect]
     Indication: HYPERTRIGLYCERIDAEMIA
     Dosage: FENOFIBRATE 200MG ; FENOFIBRATE 54MG; FENOFIBRATE 160MG
     Dates: start: 20100601, end: 20101101

REACTIONS (3)
  - WEIGHT DECREASED [None]
  - PANCREATITIS [None]
  - HIGH DENSITY LIPOPROTEIN DECREASED [None]
